FAERS Safety Report 8320046 (Version 2)
Quarter: 2013Q3

REPORT INFORMATION
  Report Type: Report from Study
  Country: US (occurrence: US)
  Receive Date: 20120103
  Receipt Date: 20130808
  Transmission Date: 20140515
  Serious: Yes (Hospitalization)
  Sender: FDA-Public Use
  Company Number: US-ELI_LILLY_AND_COMPANY-US201112007284

PATIENT
  Age: 69 Year
  Sex: Female

DRUGS (3)
  1. TERIPARATIDE [Suspect]
     Indication: OSTEOPOROSIS
     Dosage: 20 UG, QD
     Dates: start: 20111108
  2. TERIPARATIDE [Suspect]
     Dosage: 20 UG, QD
  3. TERIPARATIDE [Suspect]
     Dosage: 20 UG, QD

REACTIONS (6)
  - Intestinal prolapse [Unknown]
  - Angiopathy [Unknown]
  - Lung disorder [Unknown]
  - Drug dose omission [Recovered/Resolved]
  - Drug dose omission [Recovered/Resolved]
  - Kidney infection [Unknown]
